FAERS Safety Report 11528736 (Version 1)
Quarter: 2015Q3

REPORT INFORMATION
  Report Type: Spontaneous
  Country: US (occurrence: US)
  Receive Date: 20150921
  Receipt Date: 20150921
  Transmission Date: 20151125
  Serious: No
  Sender: FDA-Public Use
  Company Number: US-TEVA-538498USA

PATIENT
  Sex: Male
  Weight: 104.42 kg

DRUGS (3)
  1. PROVIGIL [Suspect]
     Active Substance: MODAFINIL
     Indication: DEPRESSION
     Dosage: STARTED WITH HALF TABLET (50MG) PER DAY AND INCREASED OVER TIME TO 200MG DAILY
     Dates: start: 2013
  2. PROVIGIL [Suspect]
     Active Substance: MODAFINIL
     Indication: SLEEP APNOEA SYNDROME
  3. VIAGRA [Concomitant]
     Active Substance: SILDENAFIL CITRATE
     Route: 065

REACTIONS (3)
  - Weight decreased [Unknown]
  - Somnolence [Unknown]
  - Daydreaming [Unknown]

NARRATIVE: CASE EVENT DATE: 2013
